FAERS Safety Report 6410571-1 (Version None)
Quarter: 2009Q4

REPORT INFORMATION
  Report Type: 
  Country: None (occurrence: None)
  Receive Date: 20091022
  Receipt Date: 20091013
  Transmission Date: 20100525
  Serious: Yes (Hospitalization)
  Sender: FDA-Public Use
  Company Number: US-ASTRAZENECA-2009SE19731

PATIENT
  Age: 645 Month
  Sex: Female
  Weight: 82.6 kg

DRUGS (6)
  1. SYMBICORT [Suspect]
     Dosage: TOTAL DAILY DOSE 640 MCG
     Route: 055
     Dates: start: 20090701
  2. HYDROCHLOROTHIAZIDE [Concomitant]
  3. PEPCID [Concomitant]
  4. ACETAMINOPHEN [Concomitant]
     Indication: MYALGIA
  5. XOPENEX [Concomitant]
  6. BENICAR [Concomitant]
     Indication: BLOOD PRESSURE

REACTIONS (2)
  - DEVICE MISUSE [None]
  - WHEEZING [None]
